FAERS Safety Report 6091357-7 (Version None)
Quarter: 2009Q1

REPORT INFORMATION
  Report Type: 
  Country: None (occurrence: None)
  Receive Date: 20090219
  Receipt Date: 20090219
  Transmission Date: 20090719
  Serious: Yes (Hospitalization)
  Sender: FDA-Public Use
  Company Number: None

PATIENT
  Age: 59 Year
  Sex: Male
  Weight: 97.2966 kg

DRUGS (15)
  1. DOCETAXEL [Suspect]
     Indication: HEAD AND NECK CANCER
     Dosage: 75 MG/M2 IV
     Route: 042
     Dates: start: 20090202, end: 20090202
  2. ZACTIMA [Suspect]
     Indication: HEAD AND NECK CANCER
     Dosage: 100 MG PO
     Route: 048
     Dates: start: 20090202, end: 20090209
  3. ANDRODERM [Concomitant]
  4. ANDROGEL [Concomitant]
  5. ENALAPRIL [Concomitant]
  6. GABAPENTIN [Concomitant]
  7. LEVOTHYROXINE SODIUM [Concomitant]
  8. MS CONTIN [Concomitant]
  9. PRILOSEC OTC [Concomitant]
  10. ROXICET [Concomitant]
  11. TRIAMTERENE [Concomitant]
  12. VERAPAMIL [Concomitant]
  13. VIAGRA [Concomitant]
  14. ZANTAC [Concomitant]
  15. ATIVAN [Concomitant]

REACTIONS (4)
  - HEAD AND NECK CANCER [None]
  - NEOPLASM RECURRENCE [None]
  - TONGUE DISORDER [None]
  - VASCULAR PSEUDOANEURYSM [None]
